FAERS Safety Report 22955025 (Version 3)
Quarter: 2023Q4

REPORT INFORMATION
  Report Type: Report from Study
  Country: CN (occurrence: CN)
  Receive Date: 20230918
  Receipt Date: 20231005
  Transmission Date: 20240109
  Serious: Yes (Hospitalization)
  Sender: FDA-Public Use
  Company Number: CN-PFIZER INC-PV202300153499

PATIENT
  Age: 40 Year
  Sex: Male
  Weight: 72 kg

DRUGS (28)
  1. ENCORAFENIB [Suspect]
     Active Substance: ENCORAFENIB
     Indication: Colon cancer
     Dosage: 300 MG, 1X/DAY
     Route: 048
     Dates: start: 20230609, end: 20230910
  2. CETUXIMAB [Suspect]
     Active Substance: CETUXIMAB
     Indication: Colon cancer
     Dosage: 925 MG, Q2W
     Route: 042
     Dates: start: 20230609, end: 20230908
  3. LEUCOVORIN CALCIUM [Suspect]
     Active Substance: LEUCOVORIN CALCIUM
     Indication: Colon cancer
     Dosage: 740 MG, Q2W, LYOPHILIZED POWDER
     Route: 042
     Dates: start: 20230609, end: 20230908
  4. FLUOROURACIL [Suspect]
     Active Substance: FLUOROURACIL
     Indication: Colon cancer
     Dosage: 740 MG, Q2W
     Route: 042
     Dates: start: 20230609, end: 20230908
  5. FLUOROURACIL [Suspect]
     Active Substance: FLUOROURACIL
     Dosage: 4440 MG, Q2W
     Route: 042
     Dates: start: 20230609, end: 20230908
  6. OXALIPLATIN [Suspect]
     Active Substance: OXALIPLATIN
     Indication: Colon cancer
     Dosage: 157 MG, Q2W
     Route: 042
     Dates: start: 20230609, end: 20230908
  7. AMLODIPINE BENZOATE [Concomitant]
     Active Substance: AMLODIPINE BENZOATE
     Indication: Hypertension
     Dosage: 2.5 MG, 1X/DAY
     Route: 048
     Dates: start: 2021, end: 20230910
  8. HYDROCHLOROTHIAZIDE\VALSARTAN [Concomitant]
     Active Substance: HYDROCHLOROTHIAZIDE\VALSARTAN
     Indication: Hypertension
     Dosage: 1 PILL, 1X/DAY
     Route: 048
     Dates: start: 2021, end: 20230910
  9. DAPAGLIFLOZIN [Concomitant]
     Active Substance: DAPAGLIFLOZIN
     Indication: Hypoglycaemia
     Dosage: 10 MG, 1X/DAY
     Route: 048
     Dates: start: 20230814, end: 20230910
  10. SAXAGLIPTIN [Concomitant]
     Active Substance: SAXAGLIPTIN
     Indication: Hypoglycaemia
     Dosage: 5 MG, 1X/DAY
     Route: 048
     Dates: start: 20230814, end: 20230910
  11. EPALRESTAT [Concomitant]
     Active Substance: EPALRESTAT
     Indication: Hypoglycaemia
     Dosage: 50 MG, 3X/DAY
     Route: 048
     Dates: start: 20230814, end: 20230910
  12. COMPOUND VITAMIN B [PYRIDOXINE HYDROCHLORIDE;RIBOFLAVIN;THIAMINE HYDRO [Concomitant]
     Indication: Hypoaesthesia
     Dosage: 3 PILLS, 3X/DAY
     Route: 048
     Dates: start: 20230808, end: 20230910
  13. GRANULOCYTE COLONY-STIMULATING FACTOR NOS [Concomitant]
     Active Substance: GRANULOCYTE COLONY-STIMULATING FACTOR NOS
     Indication: White blood cell count increased
     Dosage: HUMAN, 0.3 MG, 1X/DAY
     Route: 030
     Dates: start: 20230910, end: 20230912
  14. GRANULOCYTE COLONY-STIMULATING FACTOR NOS [Concomitant]
     Active Substance: GRANULOCYTE COLONY-STIMULATING FACTOR NOS
     Indication: Neutrophil count increased
  15. AMINO ACIDS;GENERAL NUTRIENTS [Concomitant]
     Indication: Renal disorder prophylaxis
     Dosage: COMPOUND A-KETOACID, 2.52 G, 3X/DAY
     Route: 048
     Dates: start: 20230910, end: 20230914
  16. HERBALS [Concomitant]
     Active Substance: HERBALS
     Indication: Renal disorder prophylaxis
     Dosage: KE LI, 5 G, 4X/DAY
     Route: 048
     Dates: start: 20230910, end: 20230914
  17. LEVOFLOXACIN [Concomitant]
     Active Substance: LEVOFLOXACIN
     Indication: Anti-infective therapy
     Dosage: 100 ML, 1X/DAY
     Route: 042
     Dates: start: 20230910, end: 20230913
  18. CEFTRIAXONE SODIUM [Concomitant]
     Active Substance: CEFTRIAXONE SODIUM
     Indication: Anti-infective therapy
     Dosage: 2 G, 1X/DAY
     Route: 042
     Dates: start: 20230910, end: 20230913
  19. LIVE COMBINED BIFIDOBACTERIUM AND LACTOBACILLUS [Concomitant]
     Indication: Dysbiosis
     Dosage: 2000 MG, 3X/DAY
     Route: 048
     Dates: start: 20230910, end: 20230914
  20. MONTMORILLONITE [Concomitant]
     Active Substance: MONTMORILLONITE
     Indication: Diarrhoea
     Dosage: POWDER, 3 G, 3X/DAY
     Route: 048
     Dates: start: 20230910, end: 20230914
  21. SODIUM CHLORIDE [Concomitant]
     Active Substance: SODIUM CHLORIDE
     Indication: Infusion
     Dosage: 3 G, 1X/DAY
     Route: 042
     Dates: start: 20230910, end: 20230910
  22. POTASSIUM CHLORIDE [Concomitant]
     Active Substance: POTASSIUM CHLORIDE
     Indication: Infusion
     Dosage: 1.5 G, 1X/DAY
     Route: 042
     Dates: start: 20230910, end: 20230910
  23. POTASSIUM CHLORIDE [Concomitant]
     Active Substance: POTASSIUM CHLORIDE
     Dosage: 1 G, 1X/DAY
     Route: 042
     Dates: start: 20230910, end: 20230910
  24. ORAL REHYDRATION SALTS POWDER III [Concomitant]
     Indication: Infusion
     Dosage: POWDER, 5.125 G, 3X/DAY
     Route: 048
     Dates: start: 20230910, end: 20230914
  25. ANISODAMINE HYDROBROMIDE [Concomitant]
     Indication: Analgesic therapy
     Dosage: 0.3 G, 1X/DAY
     Route: 042
     Dates: start: 20230909, end: 20230909
  26. METOCLOPRAMIDE HYDROCHLORIDE [Concomitant]
     Active Substance: METOCLOPRAMIDE HYDROCHLORIDE
     Indication: Vomiting
     Dosage: 10 MG, 1X/DAY
     Route: 042
     Dates: start: 20230909, end: 20230910
  27. AMINO ACIDS, SOURCE UNSPECIFIED [Concomitant]
     Active Substance: AMINO ACIDS, SOURCE UNSPECIFIED
     Indication: Nutritional supplementation
     Dosage: 250 ML, 1X/DAY
     Route: 042
     Dates: start: 20230909, end: 20230910
  28. FAT EMULSION INJECTION (C14-24) [Concomitant]
     Indication: Nutritional supplementation
     Dosage: 20%, 250 ML, 1X/DAY
     Route: 042
     Dates: start: 20230909, end: 20230910

REACTIONS (1)
  - Renal failure [Recovered/Resolved]

NARRATIVE: CASE EVENT DATE: 20230910
